FAERS Safety Report 10708724 (Version 1)
Quarter: 2015Q1

REPORT INFORMATION
  Report Type: Report from Study
  Country: US (occurrence: US)
  Receive Date: 20150113
  Receipt Date: 20150113
  Transmission Date: 20150721
  Serious: Yes (Hospitalization)
  Sender: FDA-Public Use
  Company Number: US-BRISTOL-MYERS SQUIBB COMPANY-21249073

PATIENT
  Age: 64 Year
  Sex: Male
  Weight: 124.44 kg

DRUGS (34)
  1. RAMIPRIL. [Concomitant]
     Active Substance: RAMIPRIL
     Dates: start: 201201
  2. PREDNISONE. [Concomitant]
     Active Substance: PREDNISONE
     Dates: start: 20140904, end: 20140910
  3. MULTIVITAMIN                       /00097801/ [Concomitant]
     Active Substance: VITAMINS
     Dates: start: 200001
  4. SOLU-MEDROL [Concomitant]
     Active Substance: METHYLPREDNISOLONE SODIUM SUCCINATE
     Dates: start: 20140722, end: 20140723
  5. ASPIRIN                            /00002701/ [Concomitant]
     Active Substance: ASPIRIN
     Dates: start: 201304
  6. SOLU-MEDROL [Concomitant]
     Active Substance: METHYLPREDNISOLONE SODIUM SUCCINATE
  7. MULTI VITAMIN [Concomitant]
     Active Substance: VITAMINS
  8. DENOSUMAB [Concomitant]
     Active Substance: DENOSUMAB
  9. OXYCODONE [Concomitant]
     Active Substance: OXYCODONE
     Dates: start: 20140425
  10. PREDNISONE. [Concomitant]
     Active Substance: PREDNISONE
     Dates: start: 20140629, end: 20140705
  11. PREDNISONE. [Concomitant]
     Active Substance: PREDNISONE
     Dates: start: 20140911
  12. ATOVAUONE [Concomitant]
     Dates: start: 20140315
  13. FISH OIL [Concomitant]
     Active Substance: FISH OIL
     Dates: start: 200901
  14. LOPRESSOR [Concomitant]
     Active Substance: METOPROLOL TARTRATE
     Dates: start: 200603
  15. BACLOFEN. [Concomitant]
     Active Substance: BACLOFEN
     Dates: start: 20140508
  16. OXYGEN. [Concomitant]
     Active Substance: OXYGEN
  17. PREDNISONE. [Concomitant]
     Active Substance: PREDNISONE
     Dates: start: 20140724, end: 20140726
  18. XGEVA [Concomitant]
     Active Substance: DENOSUMAB
     Dates: start: 20130610
  19. PLAVIX [Concomitant]
     Active Substance: CLOPIDOGREL BISULFATE
     Dates: start: 200603
  20. ADVIL (MEFENAMIC ACID) [Concomitant]
     Active Substance: MEFENAMIC ACID
     Dates: start: 20140425
  21. BACTRIM [Concomitant]
     Active Substance: SULFAMETHOXAZOLE\TRIMETHOPRIM
  22. PREDNISONE. [Concomitant]
     Active Substance: PREDNISONE
     Dates: start: 20140726, end: 20140730
  23. OSTEO BI-FLEX [Concomitant]
     Active Substance: CHONDROITIN SULFATE A\GLUCOSAMINE
  24. PREDNISONE. [Concomitant]
     Active Substance: PREDNISONE
     Dates: start: 20140828, end: 20140903
  25. BUMEX [Concomitant]
     Active Substance: BUMETANIDE
     Dates: start: 201304
  26. IMDUR [Concomitant]
     Active Substance: ISOSORBIDE MONONITRATE
     Dates: start: 200603
  27. CALCIUM + VITAMIN D                /00944201/ [Concomitant]
     Active Substance: CALCIUM\VITAMIN D
  28. ATOVAQUONE. [Concomitant]
     Active Substance: ATOVAQUONE
  29. PREDNISONE. [Concomitant]
     Active Substance: PREDNISONE
     Dates: start: 20140731, end: 20140805
  30. NIVOLUMAB [Suspect]
     Active Substance: NIVOLUMAB
     Indication: METASTATIC RENAL CELL CARCINOMA
     Dosage: 3 MG/KG, Q2WK
     Route: 042
     Dates: start: 20131204, end: 20140226
  31. PREDNISONE. [Concomitant]
     Active Substance: PREDNISONE
     Dates: start: 20140706, end: 20140718
  32. PREDNISONE. [Concomitant]
     Active Substance: PREDNISONE
     Dates: start: 20140806, end: 20140819
  33. PREDNISONE. [Concomitant]
     Active Substance: PREDNISONE
     Dates: start: 20140820, end: 20140827
  34. CALCIUM WITH VITAMIN D             /00944201/ [Concomitant]
     Active Substance: CALCIUM\VITAMIN D
     Dates: start: 20130610

REACTIONS (1)
  - Pneumonitis [Recovered/Resolved]

NARRATIVE: CASE EVENT DATE: 20140718
